FAERS Safety Report 14431408 (Version 2)
Quarter: 2018Q1

REPORT INFORMATION
  Report Type: Spontaneous
  Country: US (occurrence: US)
  Receive Date: 20180124
  Receipt Date: 20180129
  Transmission Date: 20180509
  Serious: No
  Sender: FDA-Public Use
  Company Number: US-PFIZER INC-2018028171

PATIENT
  Sex: Female

DRUGS (1)
  1. CHANTIX [Suspect]
     Active Substance: VARENICLINE TARTRATE
     Indication: SMOKING CESSATION THERAPY
     Dosage: UNK (JUST 3 FOR 3 THREE DAYS AND THEN TWICE A DAY)
     Route: 048

REACTIONS (3)
  - Depressed mood [Unknown]
  - Depression [Unknown]
  - Anger [Unknown]
